FAERS Safety Report 21772299 (Version 6)
Quarter: 2023Q1

REPORT INFORMATION
  Report Type: Report from Study
  Country: US (occurrence: US)
  Receive Date: 20221223
  Receipt Date: 20230312
  Transmission Date: 20230418
  Serious: Yes (Hospitalization)
  Sender: FDA-Public Use
  Company Number: US-002147023-NVSC2022US292424

PATIENT
  Age: 47 Year
  Sex: Female

DRUGS (6)
  1. TREPROSTINIL [Suspect]
     Active Substance: TREPROSTINIL
     Indication: Pulmonary arterial hypertension
     Dosage: 81 NG/KG/MIN, CONT (2.5MG/ML)
     Route: 042
     Dates: start: 20211021
  2. TREPROSTINIL [Suspect]
     Active Substance: TREPROSTINIL
     Dosage: 35 NG/KG/MIN, CONT
     Route: 042
     Dates: start: 20211022
  3. TREPROSTINIL [Suspect]
     Active Substance: TREPROSTINIL
     Dosage: 81 NG/KG/MIN, CONT
     Route: 042
     Dates: start: 20211023
  4. TREPROSTINIL [Suspect]
     Active Substance: TREPROSTINIL
     Dosage: 31 NG/KG/MIN, CONT
     Route: 042
  5. TREPROSTINIL [Suspect]
     Active Substance: TREPROSTINIL
     Dosage: 33 NG/KG/MIN, CONT
     Route: 042
  6. REMODULIN [Concomitant]
     Active Substance: TREPROSTINIL
     Indication: Product used for unknown indication
     Dosage: 35 NG/KGM/MIN (INCREASED DOSE)
     Route: 042

REACTIONS (9)
  - Vascular device infection [Unknown]
  - Urinary tract infection [Unknown]
  - Influenza [Unknown]
  - Skin burning sensation [Unknown]
  - Injection site pain [Unknown]
  - Device alarm issue [Unknown]
  - Device physical property issue [Unknown]
  - Product use issue [Unknown]
  - Incorrect dose administered [Unknown]

NARRATIVE: CASE EVENT DATE: 20230130
